FAERS Safety Report 9311797 (Version 4)
Quarter: 2013Q3

REPORT INFORMATION
  Report Type: Spontaneous
  Country: PT (occurrence: PT)
  Receive Date: 20130528
  Receipt Date: 20130711
  Transmission Date: 20140515
  Serious: Yes (Other)
  Sender: FDA-Public Use
  Company Number: PHHY2013PT051974

PATIENT
  Age: 34 Year
  Sex: Female
  Weight: 60 kg

DRUGS (8)
  1. GILENYA [Suspect]
     Indication: MULTIPLE SCLEROSIS
     Dosage: 0.5 MG, UNK
     Route: 048
     Dates: start: 20130111, end: 20130502
  2. GILENYA [Suspect]
     Dosage: 0.5 MG, UNK
     Route: 048
     Dates: start: 20130515
  3. VALDOXAN [Concomitant]
     Dosage: 15 MG, QD
  4. ESOMEPRAZOL 1A PHARMA [Concomitant]
     Dosage: 50 MG, QD
  5. PRAVASTATINE [Concomitant]
     Dosage: 40 MG, UNK
  6. CALCITRIOL [Concomitant]
     Dosage: 0.25 MG, QD
  7. FOLIC ACID [Concomitant]
     Dosage: 5 MG, QD
  8. CYANOCOBALAMINE [Concomitant]
     Dosage: 1 MG, QD

REACTIONS (3)
  - Blighted ovum [Unknown]
  - Abortion spontaneous [Unknown]
  - Maternal exposure during pregnancy [Unknown]
